FAERS Safety Report 7604591-9 (Version None)
Quarter: 2011Q3

REPORT INFORMATION
  Report Type: 
  Country: None (occurrence: None)
  Receive Date: 20110712
  Receipt Date: 20110706
  Transmission Date: 20111222
  Serious: Yes (Other)
  Sender: FDA-Public Use
  Company Number: US-PFIZER INC-2011114925

PATIENT

DRUGS (1)
  1. XANAX [Suspect]
     Dosage: 2 MG, UNK

REACTIONS (1)
  - LOSS OF CONSCIOUSNESS [None]
